FAERS Safety Report 8356163-9 (Version None)
Quarter: 2012Q2

REPORT INFORMATION
  Report Type: 
  Country: None (occurrence: None)
  Receive Date: 20120514
  Receipt Date: 20120502
  Transmission Date: 20120825
  Serious: No
  Sender: FDA-Public Use
  Company Number: US-ROXANE LABORATORIES, INC.-2012-RO-01184RO

PATIENT
  Sex: Male

DRUGS (7)
  1. BEZAFIBRATE [Concomitant]
  2. M.V.I. [Concomitant]
  3. LISINOPRIL [Concomitant]
  4. CRESTOR [Concomitant]
  5. FISH OIL [Concomitant]
  6. MORPHINE [Suspect]
     Indication: BACK PAIN
     Dosage: 90 MG
     Route: 048
  7. MORPHINE [Suspect]
     Dosage: 45 MG
     Route: 048

REACTIONS (3)
  - CONSTIPATION [None]
  - PRURITUS [None]
  - FLUSHING [None]
